FAERS Safety Report 23290011 (Version 4)
Quarter: 2024Q2

REPORT INFORMATION
  Report Type: Report from Study
  Country: US (occurrence: US)
  Receive Date: 20231212
  Receipt Date: 20240618
  Transmission Date: 20240716
  Serious: Yes (Hospitalization, Other)
  Sender: FDA-Public Use
  Company Number: US-ABBVIE-5527991

PATIENT
  Age: 85 Year
  Sex: Female
  Weight: 59.42 kg

DRUGS (20)
  1. SKYRIZI [Suspect]
     Active Substance: RISANKIZUMAB-RZAA
     Indication: Crohn^s disease
     Route: 058
     Dates: start: 20231120, end: 20240119
  2. SKYRIZI [Suspect]
     Active Substance: RISANKIZUMAB-RZAA
     Route: 058
  3. PREDNISONE [Concomitant]
     Active Substance: PREDNISONE
     Indication: Crohn^s disease
  4. SKYRIZI [Suspect]
     Active Substance: RISANKIZUMAB-RZAA
     Indication: Crohn^s disease
     Dosage: FORM STRENGTH: 600 MILLIGRAM?FIRST DOSE
     Route: 042
  5. SKYRIZI [Suspect]
     Active Substance: RISANKIZUMAB-RZAA
     Indication: Crohn^s disease
     Dosage: FORM STRENGTH: 600 MILLIGRAM
     Route: 042
     Dates: start: 20231016, end: 20231215
  6. SKYRIZI [Suspect]
     Active Substance: RISANKIZUMAB-RZAA
     Indication: Crohn^s disease
     Dosage: FORM STRENGTH: 600 MILLIGRAM,?SECOND DOSE
     Route: 042
  7. TENECTEPLASE [Concomitant]
     Active Substance: TENECTEPLASE
     Indication: Product used for unknown indication
     Dosage: 17 MG
  8. SODIUM CHLORIDE [Concomitant]
     Active Substance: SODIUM CHLORIDE
     Indication: Product used for unknown indication
  9. OMNIPAQUE [Concomitant]
     Active Substance: IOHEXOL
     Indication: Product used for unknown indication
  10. ASPIRIN [Concomitant]
     Active Substance: ASPIRIN
     Indication: Product used for unknown indication
     Dosage: IN THE MORNING FOR 30 DAYS
     Route: 048
     Dates: start: 20231116, end: 20231216
  11. ENTOCORT EC [Concomitant]
     Active Substance: BUDESONIDE
     Indication: Crohn^s disease
     Dosage: 3 MG 24 HR CAPSULE, TAKE 3 CAPSULES EVERY MORNING
     Route: 048
     Dates: end: 20240119
  12. VITAMIN D3 [Concomitant]
     Active Substance: CHOLECALCIFEROL
     Indication: Vitamin supplementation
     Dosage: TAKE 1 CAPSULE(2,000 UNITS TOTAL) BY MOUTH IN THE MORNING.
     Route: 048
     Dates: start: 20230808
  13. PROTONIX [Concomitant]
     Active Substance: PANTOPRAZOLE SODIUM
     Indication: Gastrooesophageal reflux disease
     Dosage: TAKE 1 TABLET (40 MG TOTAL) BY MOUTH DAILY AT 0700
     Route: 048
     Dates: start: 20210226
  14. MIRAPEX [Concomitant]
     Active Substance: PRAMIPEXOLE DIHYDROCHLORIDE
     Indication: Restless legs syndrome
     Dosage: TAKE 1 TABLET (0.25 MG TOTAL) BY MOUTH NIGHTLY
     Route: 048
  15. DICLOFENAC SODIUM [Concomitant]
     Active Substance: DICLOFENAC\DICLOFENAC SODIUM
     Indication: Product used for unknown indication
     Dosage: APPLY 1 G TOPICALLY 3 (THREE) TIMES A DAY AS NEEDED
     Route: 061
     Dates: end: 20240119
  16. LANOXIN [Concomitant]
     Active Substance: DIGOXIN
     Indication: Product used for unknown indication
     Dosage: 125 MCG, TAKE 1 TABLET (125 MCG TOTAL) BY MOUTH 3 (THREE) TIMES A WEEK. THREE?TIMES WEEKLY. ON MO...
     Route: 048
     Dates: start: 20210407
  17. CARDIZEM CD [Concomitant]
     Active Substance: DILTIAZEM HYDROCHLORIDE
     Indication: Supraventricular tachycardia
     Dosage: 180 MG 24 HR CAPSULE,  TAKE 1 CAPSULE?(180 MG TOTAL) BY MOUTH NIGHTLY
     Route: 048
  18. DITROPAN XL [Concomitant]
     Active Substance: OXYBUTYNIN CHLORIDE
     Indication: Hypertonic bladder
     Dosage: 5 MG 24 HR TABLET, TAKE 1 TABLET (5 MG TOTAL) BY MOUTH IN THE MORNING.
  19. FLUOXETINE [Concomitant]
     Active Substance: FLUOXETINE HYDROCHLORIDE
     Indication: Anxiety
     Dosage: TAKE 1 CAPSULE (40 MG TOTAL) BY MOUTH IN THE MORNING.
     Route: 048
  20. ALDACTONE [Concomitant]
     Active Substance: SPIRONOLACTONE
     Indication: Product used for unknown indication
     Dosage: TAKE 0.5 TABLETS (25 MG TOTAL) BY MOUTH 3 (THREE) TIMES A WEEK.?THREE TIMES WEEKLY. MONDAY, WEDNE...

REACTIONS (4)
  - Cerebrovascular accident [Recovered/Resolved]
  - Cerebrovascular accident [Unknown]
  - Unevaluable event [Unknown]
  - Eye disorder [Unknown]

NARRATIVE: CASE EVENT DATE: 20231101
